FAERS Safety Report 9917111 (Version 1)
Quarter: 2014Q1

REPORT INFORMATION
  Report Type: Report from Study
  Country: DE (occurrence: DE)
  Receive Date: 20140221
  Receipt Date: 20140221
  Transmission Date: 20141002
  Serious: Yes (Other)
  Sender: FDA-Public Use
  Company Number: DE-UCBSA-112956

PATIENT
  Age: 66 Year
  Sex: Female
  Weight: 103 kg

DRUGS (12)
  1. NEUPRO [Suspect]
     Indication: RESTLESS LEGS SYNDROME
     Route: 062
     Dates: start: 201209, end: 201310
  2. EUTHYROX [Concomitant]
     Indication: HYPOTHYROIDISM
     Route: 048
  3. RAMIPRIL COMP [Concomitant]
     Indication: HYPERTENSION
     Dosage: DOSE: 5 MG/25 MG
     Route: 048
  4. DICLOFENAC [Concomitant]
     Indication: RESTLESS LEGS SYNDROME
     Route: 048
  5. ASA [Concomitant]
     Indication: PLATELET AGGREGATION
     Route: 048
  6. PANTOPRAZOLE [Concomitant]
     Indication: GASTROOESOPHAGEAL REFLUX DISEASE
     Route: 048
  7. LEVODOPA COMP [Concomitant]
     Indication: RESTLESS LEGS SYNDROME
     Dosage: DOSE: 200 MG/ 50 MG
     Route: 048
  8. AMINEURIN [Concomitant]
     Indication: DEPRESSION
     Route: 048
  9. SIFROL [Concomitant]
     Indication: RESTLESS LEGS SYNDROME
     Dosage: STARTED BETWEEN SEP-2012 AND OCT-2013
     Route: 048
  10. ZOLPIDEM [Concomitant]
     Indication: SLEEP DISORDER
     Route: 048
  11. TRAMAL LONG [Concomitant]
     Indication: RESTLESS LEGS SYNDROME
     Route: 048
  12. SIMVA [Concomitant]
     Indication: HYPERCHOLESTEROLAEMIA
     Route: 048

REACTIONS (1)
  - Cerebrovascular accident [Unknown]
